FAERS Safety Report 5549531-1 (Version None)
Quarter: 2007Q4

REPORT INFORMATION
  Report Type: 
  Country: None (occurrence: None)
  Receive Date: 20071212
  Receipt Date: 20071130
  Transmission Date: 20080405
  Serious: Yes (Other)
  Sender: FDA-Public Use
  Company Number: PHBS2007IL20251

PATIENT
  Age: 39 Year
  Sex: Male

DRUGS (3)
  1. GLEEVEC [Suspect]
     Indication: CHRONIC MYELOID LEUKAEMIA
     Dosage: 400
     Route: 048
  2. GLEEVEC [Suspect]
     Dosage: 200 MG/D
     Route: 048
  3. ELTROXIN [Concomitant]
     Route: 065

REACTIONS (1)
  - RHABDOMYOLYSIS [None]
